FAERS Safety Report 7086472-5 (Version None)
Quarter: 2010Q4

REPORT INFORMATION
  Report Type: 
  Country: None (occurrence: None)
  Receive Date: 20101028
  Receipt Date: 20101013
  Transmission Date: 20110411
  Serious: Yes (Life-Threatening)
  Sender: FDA-Public Use
  Company Number: PI-05089

PATIENT
  Sex: Female

DRUGS (5)
  1. CHLORAPREP [Suspect]
     Indication: POSTOPERATIVE CARE
     Dosage: 0.67 ML,ONCE,TOPICAL
     Route: 061
     Dates: start: 20100401
  2. TEICOPLANIN [Concomitant]
  3. GENTAMICIN [Concomitant]
  4. FENTANYL [Concomitant]
  5. PROPOFOL [Concomitant]

REACTIONS (2)
  - ANAPHYLACTIC REACTION [None]
  - NO THERAPEUTIC RESPONSE [None]
